FAERS Safety Report 8211342-6 (Version None)
Quarter: 2012Q1

REPORT INFORMATION
  Report Type: 
  Country: None (occurrence: None)
  Receive Date: 20120315
  Receipt Date: 20120315
  Transmission Date: 20120608
  Serious: Yes (Hospitalization)
  Sender: FDA-Public Use
  Company Number: None

PATIENT
  Age: 55 Year
  Sex: Male
  Weight: 69.853 kg

DRUGS (2)
  1. PACLITAXEL [Concomitant]
     Indication: LUNG NEOPLASM MALIGNANT
     Dosage: 285 MG
     Dates: start: 20120119, end: 20120229
  2. CARBOPLATIN [Suspect]
     Indication: LUNG NEOPLASM MALIGNANT
     Dosage: 834 MG
     Dates: start: 20120119, end: 20120229

REACTIONS (3)
  - SINUS DISORDER [None]
  - FEBRILE NEUTROPENIA [None]
  - CLOSTRIDIUM TEST POSITIVE [None]
